FAERS Safety Report 25132201 (Version 1)
Quarter: 2025Q1

REPORT INFORMATION
  Report Type: Spontaneous
  Country: AU (occurrence: AU)
  Receive Date: 20250328
  Receipt Date: 20250328
  Transmission Date: 20250408
  Serious: Yes (Death, Other)
  Sender: Kenvue
  Company Number: AU-KENVUE-20250305743

PATIENT

DRUGS (1)
  1. ACETAMINOPHEN [Suspect]
     Active Substance: ACETAMINOPHEN
     Indication: Pain
     Route: 065

REACTIONS (10)
  - Acute hepatic failure [Fatal]
  - Dyspnoea [Fatal]
  - Anxiety [Fatal]
  - Thinking abnormal [Fatal]
  - Coordination abnormal [Fatal]
  - Dizziness [Fatal]
  - Constipation [Fatal]
  - Dysuria [Fatal]
  - Dysphagia [Fatal]
  - Prescribed overdose [Fatal]
